FAERS Safety Report 19647546 (Version 1)
Quarter: 2021Q3

REPORT INFORMATION
  Report Type: Spontaneous
  Country: US (occurrence: US)
  Receive Date: 20210802
  Receipt Date: 20210802
  Transmission Date: 20211014
  Serious: No
  Sender: FDA-Public Use
  Company Number: US-GLENMARK PHARMACEUTICALS-2021GMK054690

PATIENT

DRUGS (1)
  1. SIROLIMUS TABLETS, 0.5MG [Suspect]
     Active Substance: SIROLIMUS
     Indication: CARDIAC DISORDER
     Dosage: 1.5 MILLIGRAM
     Route: 048

REACTIONS (2)
  - No adverse event [Unknown]
  - Product use in unapproved indication [Unknown]
